FAERS Safety Report 4333298-9 (Version None)
Quarter: 2004Q1

REPORT INFORMATION
  Report Type: 
  Country: None (occurrence: None)
  Receive Date: 20040329
  Receipt Date: 20040107
  Transmission Date: 20041129
  Serious: No
  Sender: FDA-Public Use
  Company Number: 04P-163-0246814-00

PATIENT
  Age: 74 Year
  Sex: Female
  Weight: 104.3273 kg

DRUGS (8)
  1. HUMIRA [Suspect]
     Indication: RHEUMATOID ARTHRITIS
     Dosage: 40 MG, 1 IN 2 WK, SUBCUTANEOUS
     Route: 058
     Dates: start: 20030101, end: 20031001
  2. AZATHIOPRINE [Concomitant]
  3. NIFEDIPINE [Concomitant]
  4. ATENOLOL [Concomitant]
  5. LEVOTHYROXINE SODIUM [Concomitant]
  6. PREDNISONE [Concomitant]
  7. INSULIN ZINC SUSPENSION [Concomitant]
  8. PROPACET 100 [Concomitant]

REACTIONS (2)
  - FUNGAL SKIN INFECTION [None]
  - TOOTH ABSCESS [None]
